FAERS Safety Report 12918811 (Version 4)
Quarter: 2017Q3

REPORT INFORMATION
  Report Type: Report from Study
  Country: None (occurrence: US)
  Receive Date: 20161107
  Receipt Date: 20170720
  Transmission Date: 20171127
  Serious: Yes (Hospitalization, Other)
  Sender: FDA-Public Use
  Company Number: US-ABBVIE-16K-163-1772957-00

PATIENT
  Age: 75 Year
  Sex: Female

DRUGS (10)
  1. HUMIRA [Suspect]
     Active Substance: ADALIMUMAB
     Indication: RHEUMATOID ARTHRITIS
     Route: 058
     Dates: start: 2003, end: 201610
  2. DILTIAZEM. [Concomitant]
     Active Substance: DILTIAZEM
     Indication: PRODUCT USED FOR UNKNOWN INDICATION
  3. TRAMADOL. [Concomitant]
     Active Substance: TRAMADOL
     Indication: PRODUCT USED FOR UNKNOWN INDICATION
  4. GEMFIBROZIL. [Concomitant]
     Active Substance: GEMFIBROZIL
     Indication: PRODUCT USED FOR UNKNOWN INDICATION
  5. METOPROLOL TARTRATE. [Concomitant]
     Active Substance: METOPROLOL TARTRATE
     Indication: PRODUCT USED FOR UNKNOWN INDICATION
  6. LEVOTHYROXINE. [Concomitant]
     Active Substance: LEVOTHYROXINE
     Indication: PRODUCT USED FOR UNKNOWN INDICATION
  7. ALBUTEROL SULFATE. [Concomitant]
     Active Substance: ALBUTEROL SULFATE
     Indication: PRODUCT USED FOR UNKNOWN INDICATION
  8. TYLENOL [Concomitant]
     Active Substance: ACETAMINOPHEN
     Indication: PAIN
  9. HUMIRA [Suspect]
     Active Substance: ADALIMUMAB
     Route: 058
  10. SOMA [Concomitant]
     Active Substance: CARISOPRODOL
     Indication: PRODUCT USED FOR UNKNOWN INDICATION

REACTIONS (3)
  - Lung neoplasm malignant [Recovered/Resolved]
  - Cataract [Not Recovered/Not Resolved]
  - Stress [Not Recovered/Not Resolved]

NARRATIVE: CASE EVENT DATE: 201608
